FAERS Safety Report 8016006-X (Version None)
Quarter: 2011Q4

REPORT INFORMATION
  Report Type: 
  Country: None (occurrence: None)
  Receive Date: 20111230
  Receipt Date: 20111230
  Transmission Date: 20120403
  Serious: Yes (Hospitalization)
  Sender: FDA-Public Use
  Company Number: None

PATIENT
  Age: 71 Year
  Sex: Male

DRUGS (1)
  1. HALOPERIDOL [Suspect]

REACTIONS (2)
  - NEUROLEPTIC MALIGNANT SYNDROME [None]
  - CONFUSIONAL STATE [None]
